FAERS Safety Report 8282005-6 (Version None)
Quarter: 2012Q2

REPORT INFORMATION
  Report Type: 
  Country: None (occurrence: None)
  Receive Date: 20120413
  Receipt Date: 20120405
  Transmission Date: 20120825
  Serious: Yes (Death, Hospitalization, Other)
  Sender: FDA-Public Use
  Company Number: NL-SANOFI-AVENTIS-2012SA003918

PATIENT
  Age: 72 Year
  Sex: Male

DRUGS (1)
  1. JEVTANA KIT [Suspect]
     Indication: PROSTATE CANCER
     Route: 042
     Dates: start: 20111116, end: 20111116

REACTIONS (4)
  - PNEUMONIA [None]
  - GASTROINTESTINAL PAIN [None]
  - BACTERAEMIA [None]
  - RENAL FAILURE [None]
